FAERS Safety Report 5783046-0 (Version None)
Quarter: 2008Q2

REPORT INFORMATION
  Report Type: 
  Country: None (occurrence: None)
  Receive Date: 20080619
  Receipt Date: 20080612
  Transmission Date: 20081010
  Serious: Yes (Death, Hospitalization)
  Sender: FDA-Public Use
  Company Number: 062-21880-07110559

PATIENT
  Age: 74 Year
  Sex: Female

DRUGS (2)
  1. REVLIMID [Suspect]
     Indication: MULTIPLE MYELOMA
     Dosage: 15 MG, 4 TIMES, ORAL
     Route: 048
  2. DEXAMETHASONE [Concomitant]

REACTIONS (3)
  - MULTIPLE MYELOMA [None]
  - RENAL FAILURE [None]
  - SUBDURAL HAEMATOMA [None]
